FAERS Safety Report 9802767 (Version 2)
Quarter: 2014Q1

REPORT INFORMATION
  Report Type: Report from Study
  Country: US (occurrence: US)
  Receive Date: 20140108
  Receipt Date: 20140108
  Transmission Date: 20141002
  Serious: Yes (Hospitalization, Other)
  Sender: FDA-Public Use
  Company Number: US-ROCHE-1056120

PATIENT
  Sex: 0

DRUGS (4)
  1. BEVACIZUMAB [Suspect]
     Indication: PROSTATE CANCER METASTATIC
     Dosage: ON DAY 1
     Route: 065
  2. BEVACIZUMAB [Suspect]
     Dosage: ON DAY 15
     Route: 065
  3. SATRAPLATIN [Suspect]
     Indication: PROSTATE CANCER METASTATIC
     Dosage: ON DAYS 1-5
     Route: 048
  4. PREDNISONE [Suspect]
     Indication: PROSTATE CANCER METASTATIC
     Route: 065

REACTIONS (9)
  - Diarrhoea [Unknown]
  - Dehydration [Unknown]
  - Thrombocytopenia [Unknown]
  - Neutropenia [Unknown]
  - Hypertension [Unknown]
  - Anaemia [Unknown]
  - Fatigue [Unknown]
  - Hypokalaemia [Unknown]
  - Hyponatraemia [Unknown]
